FAERS Safety Report 4534226-3 (Version None)
Quarter: 2004Q4

REPORT INFORMATION
  Report Type: 
  Country: None (occurrence: None)
  Receive Date: 20041221
  Receipt Date: 20041221
  Transmission Date: 20050328
  Serious: No
  Sender: FDA-Public Use
  Company Number: None

PATIENT
  Sex: Male
  Weight: 24.3 kg

DRUGS (4)
  1. KETAMINE HCL [Suspect]
     Indication: SEDATIVE THERAPY
     Dosage: 1MG/KG   1 TIME   INTRAVENOU
     Route: 042
     Dates: start: 20041219, end: 20041219
  2. KETAMINE HCL [Suspect]
     Indication: THERAPEUTIC PROCEDURE
     Dosage: 1MG/KG   1 TIME   INTRAVENOU
     Route: 042
     Dates: start: 20041219, end: 20041219
  3. ATROPINE [Suspect]
     Indication: SEDATIVE THERAPY
     Dosage: 0.01MG/KG   1 TIME   INTRAVENOU
     Route: 042
     Dates: start: 20041219, end: 20041219
  4. ATROPINE [Suspect]
     Indication: THERAPEUTIC PROCEDURE
     Dosage: 0.01MG/KG   1 TIME   INTRAVENOU
     Route: 042
     Dates: start: 20041219, end: 20041219

REACTIONS (1)
  - CONVULSION [None]
